FAERS Safety Report 21541706 (Version 1)
Quarter: 2022Q4

REPORT INFORMATION
  Report Type: Spontaneous
  Country: JP (occurrence: JP)
  Receive Date: 20221102
  Receipt Date: 20221102
  Transmission Date: 20230113
  Serious: Yes (Death, Other)
  Sender: FDA-Public Use
  Company Number: JP-Clinigen Group PLC/ Clinigen Healthcare Ltd-JP-CLGN-22-00486

PATIENT
  Age: 63 Year
  Sex: Female

DRUGS (4)
  1. FOSCARNET SODIUM [Suspect]
     Active Substance: FOSCARNET SODIUM
     Indication: Cytomegalovirus viraemia
  2. FOSCARNET SODIUM [Suspect]
     Active Substance: FOSCARNET SODIUM
     Indication: Cytomegalovirus chorioretinitis
  3. FOSCARNET SODIUM [Suspect]
     Active Substance: FOSCARNET SODIUM
     Indication: Oophoritis
  4. FOSCARNET SODIUM [Suspect]
     Active Substance: FOSCARNET SODIUM
     Indication: Cytomegalovirus infection

REACTIONS (7)
  - Meningitis viral [Fatal]
  - Liver injury [Unknown]
  - Myelosuppression [Unknown]
  - Condition aggravated [Unknown]
  - Febrile neutropenia [Unknown]
  - Pancytopenia [Recovering/Resolving]
  - Off label use [Unknown]
